FAERS Safety Report 8943530 (Version 2)
Quarter: 2012Q4

REPORT INFORMATION
  Report Type: 
  Country: CL (occurrence: CL)
  Receive Date: 20121203
  Receipt Date: 20121224
  Transmission Date: 20130627
  Serious: Yes (Other)
  Sender: FDA-Public Use
  Company Number: PHHY2012CL109927

PATIENT
  Age: 30 Year
  Sex: Male

DRUGS (2)
  1. ARIPIPRAZOLE [Suspect]
     Indication: DEVELOPMENTAL DELAY
     Dosage: 5 mg
  2. PAROXETINE [Interacting]
     Indication: DEPRESSION
     Dosage: 20 mg

REACTIONS (3)
  - Extrapyramidal disorder [Recovered/Resolved]
  - Parkinsonism [Recovered/Resolved]
  - Drug interaction [Recovered/Resolved]
